FAERS Safety Report 14326219 (Version 1)
Quarter: 2017Q4

REPORT INFORMATION
  Report Type: Spontaneous
  Country: US (occurrence: US)
  Receive Date: 20171227
  Receipt Date: 20171227
  Transmission Date: 20180321
  Serious: Yes (Death)
  Sender: FDA-Public Use
  Company Number: US-VISTAPHARM, INC.-VER201712-001449

PATIENT
  Age: 50 Year
  Sex: Male
  Weight: 74.4 kg

DRUGS (13)
  1. VALPROIC ACID. [Suspect]
     Active Substance: VALPROIC ACID
     Indication: SCHIZOAFFECTIVE DISORDER
  2. LISINOPRIL. [Concomitant]
     Active Substance: LISINOPRIL
     Indication: HYPERTENSION
  3. CLOZAPINE. [Suspect]
     Active Substance: CLOZAPINE
  4. CLOZAPINE. [Suspect]
     Active Substance: CLOZAPINE
  5. CLOZAPINE. [Suspect]
     Active Substance: CLOZAPINE
  6. CLOZAPINE. [Suspect]
     Active Substance: CLOZAPINE
  7. QUETIAPINE. [Concomitant]
     Active Substance: QUETIAPINE
     Indication: SCHIZOAFFECTIVE DISORDER
  8. CLOZAPINE. [Suspect]
     Active Substance: CLOZAPINE
  9. BENZTROPINE [Concomitant]
     Active Substance: BENZTROPINE
     Indication: TARDIVE DYSKINESIA
  10. CLOZAPINE. [Suspect]
     Active Substance: CLOZAPINE
     Indication: TARDIVE DYSKINESIA
     Dosage: 1625 MG (ACCUMULATED DOSE)
  11. CLOZAPINE. [Suspect]
     Active Substance: CLOZAPINE
  12. QUETIAPINE. [Concomitant]
     Active Substance: QUETIAPINE
     Indication: PSYCHIATRIC SYMPTOM
  13. HYDROCHLOROTHIAZIDE. [Concomitant]
     Active Substance: HYDROCHLOROTHIAZIDE
     Indication: HYPERTENSION

REACTIONS (2)
  - Myocarditis [Fatal]
  - Drug interaction [Fatal]
